FAERS Safety Report 25558763 (Version 1)
Quarter: 2025Q3

REPORT INFORMATION
  Report Type: Spontaneous
  Country: US (occurrence: US)
  Receive Date: 20250715
  Receipt Date: 20250715
  Transmission Date: 20251020
  Serious: No
  Sender: NOVO NORDISK
  Company Number: US-NOVOPROD-1437941

PATIENT
  Age: 50 Year
  Sex: Female

DRUGS (3)
  1. OZEMPIC [Suspect]
     Active Substance: SEMAGLUTIDE
     Indication: Product used for unknown indication
     Dates: start: 2025
  2. OZEMPIC [Suspect]
     Active Substance: SEMAGLUTIDE
     Dates: start: 20250414
  3. REMODULIN [Suspect]
     Active Substance: TREPROSTINIL
     Indication: Pulmonary arterial hypertension
     Route: 042
     Dates: start: 20250414

REACTIONS (4)
  - Metabolic function test abnormal [Unknown]
  - Headache [Unknown]
  - Treatment noncompliance [Unknown]
  - Prescription drug used without a prescription [Unknown]
